FAERS Safety Report 7905821-6 (Version None)
Quarter: 2011Q4

REPORT INFORMATION
  Report Type: 
  Country: None (occurrence: None)
  Receive Date: 20111108
  Receipt Date: 20111009
  Transmission Date: 20120403
  Serious: No
  Sender: FDA-Public Use
  Company Number: C-11-035

PATIENT

DRUGS (2)
  1. PHENTERMINE HYDROCHLORIDE [Suspect]
     Indication: WEIGHT CONTROL
     Dosage: 18.75-37.5MG-DAILY-ORAL
     Route: 048
     Dates: start: 20110921, end: 20111001
  2. CLARITIN [Concomitant]

REACTIONS (2)
  - DRY MOUTH [None]
  - DRUG INEFFECTIVE [None]
